FAERS Safety Report 9720595 (Version 3)
Quarter: 2014Q1

REPORT INFORMATION
  Report Type: Report from Study
  Country: FR (occurrence: FR)
  Receive Date: 20131129
  Receipt Date: 20140110
  Transmission Date: 20141002
  Serious: Yes (Other)
  Sender: FDA-Public Use
  Company Number: PHHY2013FR137464

PATIENT
  Age: 74 Year
  Sex: Male

DRUGS (7)
  1. MYCOPHENOLIC ACID [Suspect]
     Indication: RENAL TRANSPLANT
     Dosage: 720 MG, BID
     Dates: start: 20130408
  2. MYCOPHENOLIC ACID [Suspect]
     Dosage: 720 MG, QD
     Dates: start: 20131017
  3. NEORAL [Concomitant]
     Dosage: 420 MG, QD
  4. NEORAL [Concomitant]
     Dosage: 275 MG, QD
  5. CORTANCYL [Concomitant]
     Dosage: 80 MG, QD
  6. CORTANCYL [Concomitant]
     Dosage: 5 MG, QD
  7. CORTICOSTEROIDS [Concomitant]
     Dosage: UNK UKN, UNK

REACTIONS (2)
  - Diabetes mellitus [Recovering/Resolving]
  - Thrombotic microangiopathy [Recovering/Resolving]
